FAERS Safety Report 7310244-7 (Version None)
Quarter: 2011Q1

REPORT INFORMATION
  Report Type: 
  Country: None (occurrence: None)
  Receive Date: 20110224
  Receipt Date: 20110219
  Transmission Date: 20110831
  Serious: No
  Sender: FDA-Public Use
  Company Number: US-PFIZER INC-2011036797

PATIENT
  Sex: Female
  Weight: 61.224 kg

DRUGS (2)
  1. PRISTIQ [Suspect]
     Indication: NERVOUSNESS
  2. PRISTIQ [Suspect]
     Indication: ANXIETY
     Dosage: UNK
     Route: 048
     Dates: start: 20110217, end: 20110217

REACTIONS (2)
  - PALPITATIONS [None]
  - CRYING [None]
